FAERS Safety Report 6963908-9 (Version None)
Quarter: 2010Q3

REPORT INFORMATION
  Report Type: 
  Country: None (occurrence: None)
  Receive Date: 20100831
  Receipt Date: 20100816
  Transmission Date: 20110219
  Serious: Yes (Hospitalization, Other)
  Sender: FDA-Public Use
  Company Number: DSJ-2010-13744

PATIENT
  Sex: Male

DRUGS (6)
  1. BENICAR [Suspect]
     Indication: HYPERTENSION
     Dosage: 20 MG (20 MG, 1 IN 1 D), PER ORAL
     Route: 048
     Dates: start: 20060101, end: 20080101
  2. METOPROLOL SUCCINATE [Concomitant]
  3. ROSUVASTATIN (ROSUVASTATIN) (ROSUVASTATIN) [Concomitant]
  4. SITAGLIPTIN (SITAGLIPTIN) (SITAGLIPTIN) [Concomitant]
  5. VITAMIN B1 (THIAMINE HYDROCHLORIDE) (THIAMINE HYDROCHLORIDE) [Concomitant]
  6. PASIFLORA INCARNATA/CRATAEGUS OXYCANTHA/SALIX ALBA [Concomitant]

REACTIONS (4)
  - ABDOMINAL PAIN [None]
  - NASOPHARYNGITIS [None]
  - TREATMENT NONCOMPLIANCE [None]
  - VOMITING [None]
